FAERS Safety Report 9039807 (Version 3)
Quarter: 2013Q3

REPORT INFORMATION
  Report Type: Spontaneous
  Country: US (occurrence: US)
  Receive Date: 20130130
  Receipt Date: 20130925
  Transmission Date: 20140515
  Serious: No
  Sender: FDA-Public Use
  Company Number: US-BIOGENIDEC-2013BI006798

PATIENT
  Sex: Male

DRUGS (2)
  1. TYSABRI [Suspect]
     Indication: MULTIPLE SCLEROSIS
     Route: 042
     Dates: start: 20101001
  2. AVONEX [Concomitant]
     Indication: MULTIPLE SCLEROSIS
     Route: 030

REACTIONS (5)
  - Drug effect decreased [Unknown]
  - Mobility decreased [Not Recovered/Not Resolved]
  - Abasia [Not Recovered/Not Resolved]
  - Dysstasia [Not Recovered/Not Resolved]
  - Drug ineffective [Not Recovered/Not Resolved]
